FAERS Safety Report 5823904-1 (Version None)
Quarter: 2008Q3

REPORT INFORMATION
  Report Type: 
  Country: None (occurrence: None)
  Receive Date: 20080724
  Receipt Date: 20080711
  Transmission Date: 20090109
  Serious: Yes (Death)
  Sender: FDA-Public Use
  Company Number: 14885

PATIENT
  Age: 71 Year
  Sex: Male

DRUGS (2)
  1. MORPHINE SULFATE [Suspect]
     Dosage: ONE SINGLE DOSE ORALLY
     Route: 048
     Dates: start: 20070528
  2. UNKNOWN DRUG FOR LIVER DISEASE [Concomitant]

REACTIONS (5)
  - CARDIOVASCULAR DISORDER [None]
  - DRUG LEVEL INCREASED [None]
  - HYPOTENSION [None]
  - LOSS OF CONSCIOUSNESS [None]
  - PHARMACEUTICAL PRODUCT COMPLAINT [None]
